FAERS Safety Report 8815620 (Version 1)
Quarter: 2012Q4

REPORT INFORMATION
  Report Type: 
  Country: DE (occurrence: DE)
  Receive Date: 20120928
  Receipt Date: 20120928
  Transmission Date: 20130627
  Serious: Yes (Other)
  Sender: FDA-Public Use
  Company Number: DE-BAYER-2012-082235

PATIENT
  Age: 71 Year
  Sex: Male

DRUGS (2)
  1. IOPROMIDE 370 [Suspect]
     Indication: CARDIAC IMAGING PROCEDURE
     Dosage: 80 ml, ONCE
     Dates: start: 201204, end: 201204
  2. IOPROMIDE 370 [Suspect]
     Indication: CORONARY ARTERY DISEASE

REACTIONS (1)
  - Thrombophlebitis superficial [Not Recovered/Not Resolved]
